FAERS Safety Report 10190134 (Version 2)
Quarter: 2014Q2

REPORT INFORMATION
  Report Type: Spontaneous
  Country: FR (occurrence: FR)
  Receive Date: 20140522
  Receipt Date: 20140522
  Transmission Date: 20141212
  Serious: Yes (Other)
  Sender: FDA-Public Use
  Company Number: FR-ELI_LILLY_AND_COMPANY-FR201403002245

PATIENT
  Age: 67 Year
  Sex: Female
  Weight: 70 kg

DRUGS (2)
  1. DULOXETINE HYDROCHLORIDE [Suspect]
     Indication: DEPRESSION
     Dosage: 30 MG, UNKNOWN
     Route: 048
     Dates: start: 20130403, end: 20131105
  2. INEXIUM [Concomitant]
     Indication: ULCER
     Dosage: 20 MG, UNKNOWN
     Route: 048

REACTIONS (2)
  - Colitis microscopic [Recovered/Resolved]
  - Weight decreased [Recovered/Resolved]
